FAERS Safety Report 7462311-5 (Version None)
Quarter: 2011Q2

REPORT INFORMATION
  Report Type: 
  Country: None (occurrence: None)
  Receive Date: 20110506
  Receipt Date: 20110504
  Transmission Date: 20111010
  Serious: Yes (Hospitalization)
  Sender: FDA-Public Use
  Company Number: IT-ABBOTT-11P-083-0723236-00

PATIENT
  Sex: Female

DRUGS (2)
  1. TACHIPIRINA [Concomitant]
     Indication: PRODUCT USED FOR UNKNOWN INDICATION
  2. CLARITHROMYCIN [Suspect]
     Indication: SCARLET FEVER
     Route: 048
     Dates: start: 20110406, end: 20110411

REACTIONS (3)
  - SKIN EXFOLIATION [None]
  - CONJUNCTIVAL HYPERAEMIA [None]
  - ACUTE GENERALISED EXANTHEMATOUS PUSTULOSIS [None]
